FAERS Safety Report 4601474-3 (Version None)
Quarter: 2005Q1

REPORT INFORMATION
  Report Type: 
  Country: None (occurrence: None)
  Receive Date: 20050307
  Receipt Date: 20050307
  Transmission Date: 20050727
  Serious: Yes (Hospitalization)
  Sender: FDA-Public Use
  Company Number: None

PATIENT
  Age: 87 Year
  Sex: Male
  Weight: 40.7 kg

DRUGS (1)
  1. PHENYTOIN [Suspect]

REACTIONS (3)
  - COORDINATION ABNORMAL [None]
  - LETHARGY [None]
  - MENTAL STATUS CHANGES [None]
